FAERS Safety Report 9943217 (Version 2)
Quarter: 2014Q1

REPORT INFORMATION
  Report Type: Report from Study
  Country: CA (occurrence: CA)
  Receive Date: 20140303
  Receipt Date: 20140303
  Transmission Date: 20141002
  Serious: Yes (Hospitalization)
  Sender: FDA-Public Use
  Company Number: PHHO2010CA00753

PATIENT
  Age: 76 Year
  Sex: Female
  Weight: 94 kg

DRUGS (17)
  1. PLACEBO [Suspect]
     Indication: CARDIOVASCULAR DISORDER
     Route: 048
     Dates: start: 20080814, end: 20111221
  2. METOPROLOL [Suspect]
  3. INSULIN HUMULIN 70/30 [Suspect]
     Indication: DIABETES MELLITUS
  4. RAMIPRIL [Concomitant]
     Indication: BLOOD PRESSURE
  5. GLUCOSAMINE [Concomitant]
     Indication: OSTEOARTHRITIS
  6. ASA [Concomitant]
  7. VITAMIN D [Concomitant]
  8. MULTIVITAMINS [Concomitant]
  9. NORVASC [Concomitant]
  10. LIPITOR [Concomitant]
  11. ATENOLOL [Concomitant]
     Indication: BLOOD PRESSURE
     Dates: end: 20120303
  12. METFORMIN [Concomitant]
     Indication: DIABETES MELLITUS
     Dosage: 15 G, QD
     Route: 048
  13. ACETAMINOPHEN [Concomitant]
     Indication: ARTHRALGIA
  14. AMLODIPINE [Concomitant]
     Indication: HYPERTENSION
     Dosage: UNK
  15. ATORVASTATIN [Concomitant]
     Indication: HYPERLIPIDAEMIA
  16. CALCIUM [Concomitant]
     Indication: OSTEOPENIA
  17. HYDROCHLOROTHIAZIDE [Concomitant]
     Dosage: 25 MG, QD
     Route: 048

REACTIONS (3)
  - Osteoarthritis [Recovered/Resolved]
  - Mobility decreased [Recovered/Resolved]
  - Concomitant disease progression [Recovered/Resolved]
